FAERS Safety Report 17775170 (Version 1)
Quarter: 2020Q2

REPORT INFORMATION
  Report Type: Spontaneous
  Country: US (occurrence: US)
  Receive Date: 20200512
  Receipt Date: 20200512
  Transmission Date: 20200714
  Serious: Yes (Hospitalization)
  Sender: FDA-Public Use
  Company Number: None

PATIENT
  Sex: Female

DRUGS (12)
  1. CYCLOPENTOL SOL [Concomitant]
  2. PREDNISOLONE SOL [Concomitant]
  3. HUMIRA [Suspect]
     Active Substance: ADALIMUMAB
     Indication: JUVENILE IDIOPATHIC ARTHRITIS
     Dosage: ?          OTHER FREQUENCY:EVERY 14 DAYS;?
     Route: 058
     Dates: start: 20191008
  4. BRIMONIDINE SOL [Concomitant]
  5. TIMOLOL GEL SOL [Concomitant]
  6. CALTRATE +D3 [Concomitant]
  7. TYLENOL [Concomitant]
     Active Substance: ACETAMINOPHEN
  8. ALBUTEROL NEB [Concomitant]
     Active Substance: ALBUTEROL
  9. KETOROLAC [Concomitant]
     Active Substance: KETOROLAC TROMETHAMINE
  10. MULTIVIT [Concomitant]
     Active Substance: VITAMINS
  11. FLOVENT DISK AER [Concomitant]
  12. PREDNISONE. [Concomitant]
     Active Substance: PREDNISONE

REACTIONS (2)
  - Headache [None]
  - Injection site reaction [None]
